FAERS Safety Report 16530790 (Version 7)
Quarter: 2019Q4

REPORT INFORMATION
  Report Type: Spontaneous
  Country: US (occurrence: US)
  Receive Date: 20190704
  Receipt Date: 20191226
  Transmission Date: 20200122
  Serious: Yes (Congenital Anomaly, Other)
  Sender: FDA-Public Use
  Company Number: PHEH2019US028051

PATIENT
  Sex: Male

DRUGS (1)
  1. ZOFRAN [Suspect]
     Active Substance: ONDANSETRON HYDROCHLORIDE
     Indication: FOETAL EXPOSURE DURING PREGNANCY
     Dosage: MOTHER DOSE: 08 MG, TID
     Route: 064

REACTIONS (7)
  - Cleft palate [Unknown]
  - Phimosis [Unknown]
  - Chronic tonsillitis [Unknown]
  - Foetal exposure during pregnancy [Unknown]
  - Dysarthria [Unknown]
  - Penile torsion [Unknown]
  - Injury [Unknown]
